FAERS Safety Report 23462024 (Version 1)
Quarter: 2024Q1

REPORT INFORMATION
  Report Type: Spontaneous
  Country: US (occurrence: None)
  Receive Date: 20240130
  Receipt Date: 20240130
  Transmission Date: 20240410
  Serious: Yes (Disabling)
  Sender: FDA-Public Use
  Company Number: None

PATIENT
  Age: 67 Year
  Sex: Female
  Weight: 59.87 kg

DRUGS (6)
  1. CLIMARA PRO [Suspect]
     Active Substance: ESTRADIOL\LEVONORGESTREL
     Indication: Menopausal symptoms
     Dosage: OTHER STRENGTH : 0.045/0.014MG/DAY;?OTHER QUANTITY : 1 PATCH;?FREQUENCY : PER WEEK;?OTHER ROUTE : AP
     Route: 050
     Dates: start: 201110
  2. VITAMIN B12 [Concomitant]
     Active Substance: CYANOCOBALAMIN
  3. VITAMIN D3 [Concomitant]
     Active Substance: CHOLECALCIFEROL
  4. VITAMIN E [Concomitant]
     Active Substance: .ALPHA.-TOCOPHEROL
  5. FLAXSEED [Concomitant]
     Active Substance: FLAX SEED
  6. Probiotics [Concomitant]

REACTIONS (10)
  - Wrong technique in product usage process [None]
  - Product supply issue [None]
  - Incorrect dose administered [None]
  - Withdrawal syndrome [None]
  - Night sweats [None]
  - Brain fog [None]
  - Anxiety [None]
  - Poor quality sleep [None]
  - General physical health deterioration [None]
  - Mental impairment [None]

NARRATIVE: CASE EVENT DATE: 20221123
